FAERS Safety Report 6327557-8 (Version None)
Quarter: 2009Q3

REPORT INFORMATION
  Report Type: 
  Country: None (occurrence: None)
  Receive Date: 20090825
  Receipt Date: 20090812
  Transmission Date: 20100115
  Serious: Yes (Hospitalization)
  Sender: FDA-Public Use
  Company Number: GB-ELI_LILLY_AND_COMPANY-GB200908002426

PATIENT
  Age: 54 Year
  Sex: Male

DRUGS (2)
  1. DULOXETINE HYDROCHLORIDE [Suspect]
     Indication: BIPOLAR DISORDER
     Dosage: 60 MG, DAILY (1/D)
     Route: 048
     Dates: start: 20090724, end: 20090729
  2. LITHIUM CARBONATE [Concomitant]
     Indication: BIPOLAR DISORDER
     Dosage: UNK, UNKNOWN
     Route: 048
     Dates: start: 20060101, end: 20090729

REACTIONS (3)
  - DYSTONIA [None]
  - EXTRAPYRAMIDAL DISORDER [None]
  - OFF LABEL USE [None]
